FAERS Safety Report 23105656 (Version 1)
Quarter: 2023Q4

REPORT INFORMATION
  Report Type: Spontaneous
  Country: US (occurrence: None)
  Receive Date: 20231023
  Receipt Date: 20231023
  Transmission Date: 20240109
  Serious: Yes (Hospitalization)
  Sender: FDA-Public Use
  Company Number: None

PATIENT
  Age: 81 Year
  Sex: Male

DRUGS (1)
  1. QUETIAPINE FUMARATE [Suspect]
     Active Substance: QUETIAPINE FUMARATE
     Dosage: FREQUENCY : DAILY;?
     Route: 048
     Dates: start: 20221116, end: 20221123

REACTIONS (8)
  - Agitation [None]
  - Sedation [None]
  - Tardive dyskinesia [None]
  - Mental status changes [None]
  - Malignant catatonia [None]
  - Septic shock [None]
  - Pneumomediastinum [None]
  - Pulmonary hypertension [None]
